FAERS Safety Report 7180445-X (Version None)
Quarter: 2010Q4

REPORT INFORMATION
  Report Type: 
  Country: None (occurrence: None)
  Receive Date: 20101208
  Receipt Date: 20101122
  Transmission Date: 20110411
  Serious: Yes (Other)
  Sender: FDA-Public Use
  Company Number: 011983

PATIENT
  Age: 17 Year
  Sex: Male

DRUGS (5)
  1. BUSULFEX [Suspect]
     Indication: STEM CELL TRANSPLANT
     Dosage: INTRAVENOUS
     Route: 042
  2. CAMPATH [Concomitant]
  3. FLUDARABINE PHOSPHATE [Concomitant]
  4. METHOTREXATE [Concomitant]
  5. CYCLOSPORINE [Concomitant]

REACTIONS (6)
  - AMBLYOPIA [None]
  - CYTOMEGALOVIRUS INFECTION [None]
  - MUCOSAL INFLAMMATION [None]
  - PUPILLARY REFLEX IMPAIRED [None]
  - STAPHYLOCOCCAL BACTERAEMIA [None]
  - WEIGHT DECREASED [None]
